FAERS Safety Report 24049061 (Version 2)
Quarter: 2024Q3

REPORT INFORMATION
  Report Type: Spontaneous
  Country: US (occurrence: US)
  Receive Date: 20240704
  Receipt Date: 20240720
  Transmission Date: 20241017
  Serious: Yes (Hospitalization, Other)
  Sender: ABBVIE
  Company Number: US-ABBVIE-5824247

PATIENT
  Sex: Male
  Weight: 108.86 kg

DRUGS (5)
  1. DEPAKOTE [Suspect]
     Active Substance: DIVALPROEX SODIUM
     Indication: Product used for unknown indication
     Route: 065
  2. BUMETANIDE [Concomitant]
     Active Substance: BUMETANIDE
     Indication: Oedema
  3. TRAMADOL [Concomitant]
     Active Substance: TRAMADOL\TRAMADOL HYDROCHLORIDE
     Indication: Product used for unknown indication
  4. EFFEXOR [Concomitant]
     Active Substance: VENLAFAXINE HYDROCHLORIDE
     Indication: Depression
  5. PRILOSEC [Concomitant]
     Active Substance: OMEPRAZOLE MAGNESIUM
     Indication: Gastrointestinal disorder

REACTIONS (15)
  - Intervertebral disc protrusion [Recovered/Resolved]
  - Spinal fusion surgery [Unknown]
  - Neuropathy peripheral [Not Recovered/Not Resolved]
  - Cataract [Recovered/Resolved]
  - Spinal disorder [Not Recovered/Not Resolved]
  - Bone disorder [Not Recovered/Not Resolved]
  - Scar [Unknown]
  - Exostosis [Recovered/Resolved with Sequelae]
  - Skin disorder [Unknown]
  - Bone loss [Not Recovered/Not Resolved]
  - Back pain [Unknown]
  - Spinal pain [Not Recovered/Not Resolved]
  - Nodule [Not Recovered/Not Resolved]
  - Osteomyelitis [Not Recovered/Not Resolved]
  - Ear pain [Unknown]

NARRATIVE: CASE EVENT DATE: 20100101
